FAERS Safety Report 5767255-2 (Version None)
Quarter: 2008Q2

REPORT INFORMATION
  Report Type: 
  Country: None (occurrence: None)
  Receive Date: 20080611
  Receipt Date: 20080611
  Transmission Date: 20081010
  Serious: Yes (Other)
  Sender: FDA-Public Use
  Company Number: None

PATIENT
  Age: 21 Year
  Sex: Female
  Weight: 59.4212 kg

DRUGS (1)
  1. MINOCYCLINE HCL [Suspect]
     Indication: STAPHYLOCOCCAL SKIN INFECTION
     Dosage: 60 2 PO
     Route: 048
     Dates: start: 20080516, end: 20080523

REACTIONS (5)
  - ASTHENIA [None]
  - CONFUSIONAL STATE [None]
  - DIZZINESS [None]
  - FATIGUE [None]
  - HEADACHE [None]
